FAERS Safety Report 5523156-6 (Version None)
Quarter: 2007Q4

REPORT INFORMATION
  Report Type: 
  Country: None (occurrence: None)
  Receive Date: 20071116
  Receipt Date: 20071109
  Transmission Date: 20080405
  Serious: Yes (Hospitalization)
  Sender: FDA-Public Use
  Company Number: 2007BI022211

PATIENT
  Age: 41 Year
  Sex: Female

DRUGS (2)
  1. NATALIZUMAB [Suspect]
     Indication: MULTIPLE SCLEROSIS
     Dosage: 300 MG; QM; IV
     Route: 042
     Dates: start: 20070817
  2. AVONEX [Concomitant]

REACTIONS (3)
  - ABDOMINAL ADHESIONS [None]
  - CHOLECYSTECTOMY [None]
  - SMALL INTESTINAL OBSTRUCTION [None]
